FAERS Safety Report 9782118 (Version 5)
Quarter: 2014Q3

REPORT INFORMATION
  Report Type: Report from Study
  Country: US (occurrence: US)
  Receive Date: 20131226
  Receipt Date: 20140821
  Transmission Date: 20150326
  Serious: Yes (Hospitalization)
  Sender: FDA-Public Use
  Company Number: US-BRISTOL-MYERS SQUIBB COMPANY-19919869

PATIENT
  Age: 72 Year
  Sex: Male
  Weight: 82.3 kg

DRUGS (13)
  1. INFLIXIMAB [Concomitant]
     Active Substance: INFLIXIMAB
  2. TRIAMCINOLONE [Concomitant]
     Active Substance: TRIAMCINOLONE
     Dosage: TRIAMCINOLONE 0.1% CREAM
     Dates: start: 20130912
  3. LORATADINE. [Concomitant]
     Active Substance: LORATADINE
     Dates: start: 20130725
  4. REMICADE [Concomitant]
     Active Substance: INFLIXIMAB
  5. ASPIRIN. [Concomitant]
     Active Substance: ASPIRIN
     Dates: start: 2003
  6. ALFUZOSIN [Concomitant]
     Active Substance: ALFUZOSIN
     Dates: start: 2003
  7. PROCHLORPERAZINE. [Concomitant]
     Active Substance: PROCHLORPERAZINE
     Dates: start: 20130722
  8. VEMURAFENIB [Suspect]
     Active Substance: VEMURAFENIB
     Indication: MALIGNANT MELANOMA
     Dosage: 15JUL13-25JUL13-1920MG?06AUG13-26AUG13-1440MG
     Route: 048
     Dates: start: 20130715, end: 20130826
  9. SOLU-MEDROL [Concomitant]
     Active Substance: METHYLPREDNISOLONE SODIUM SUCCINATE
  10. IPILIMUMAB [Suspect]
     Active Substance: IPILIMUMAB
     Indication: MALIGNANT MELANOMA
     Route: 042
     Dates: start: 20130903, end: 20131104
  11. FINASTERIDE. [Concomitant]
     Active Substance: FINASTERIDE
     Dates: start: 2003
  12. MULTIVITAMIN [Concomitant]
     Active Substance: VITAMINS
     Dates: start: 2003
  13. PREDNISONE. [Concomitant]
     Active Substance: PREDNISONE

REACTIONS (1)
  - Colitis [Recovered/Resolved]

NARRATIVE: CASE EVENT DATE: 20131116
